FAERS Safety Report 6524548-9 (Version None)
Quarter: 2010Q1

REPORT INFORMATION
  Report Type: 
  Country: None (occurrence: None)
  Receive Date: 20100104
  Receipt Date: 20091228
  Transmission Date: 20100710
  Serious: Yes (Life-Threatening, Hospitalization)
  Sender: FDA-Public Use
  Company Number: FR-ROCHE-676692

PATIENT
  Sex: Female

DRUGS (8)
  1. ROCEPHIN [Suspect]
     Indication: DRUG USE FOR UNKNOWN INDICATION
     Route: 065
     Dates: start: 20091017, end: 20091021
  2. TAMIFLU [Suspect]
     Indication: H1N1 INFLUENZA
     Route: 065
     Dates: start: 20091017, end: 20091021
  3. ROVAMYCINE [Suspect]
     Indication: DRUG USE FOR UNKNOWN INDICATION
     Route: 065
     Dates: start: 20091017, end: 20091022
  4. CLAMOXYL [Concomitant]
     Dates: start: 20091013
  5. EFFERALGAN [Concomitant]
     Dates: start: 20091013
  6. HEXASPRAY [Concomitant]
     Dates: start: 20091013
  7. DERINOX [Concomitant]
     Dates: start: 20091013
  8. RHINATHIOL [Concomitant]
     Dates: start: 20091013

REACTIONS (3)
  - ACUTE RESPIRATORY DISTRESS SYNDROME [None]
  - LUNG DISORDER [None]
  - LUNG INFILTRATION [None]
